FAERS Safety Report 7354952-0 (Version None)
Quarter: 2011Q1

REPORT INFORMATION
  Report Type: 
  Country: None (occurrence: None)
  Receive Date: 20110307
  Receipt Date: 20110225
  Transmission Date: 20110831
  Serious: Yes (Other)
  Sender: FDA-Public Use
  Company Number: 7044241

PATIENT
  Age: 14 Year
  Sex: Female

DRUGS (1)
  1. EUTHYROX 50 MCG (LEVOTHYROXINE SODIUM) (50 MICROGRAM, TABLET) (LEVOTHY [Suspect]
     Indication: PRODUCT USED FOR UNKNOWN INDICATION

REACTIONS (4)
  - GASTROINTESTINAL DISORDER [None]
  - HEADACHE [None]
  - GASTROOESOPHAGEAL REFLUX DISEASE [None]
  - SKIN LESION [None]
